FAERS Safety Report 4876902-9 (Version None)
Quarter: 2006Q1

REPORT INFORMATION
  Report Type: 
  Country: None (occurrence: None)
  Receive Date: 20060110
  Receipt Date: 20060104
  Transmission Date: 20060701
  Serious: Yes (Other)
  Sender: FDA-Public Use
  Company Number: US-JNJFOC-20050905352

PATIENT
  Sex: Female
  Weight: 78.02 kg

DRUGS (8)
  1. REMICADE [Suspect]
     Route: 042
  2. REMICADE [Suspect]
     Indication: RHEUMATOID ARTHRITIS
     Route: 042
  3. PREMARIN [Concomitant]
  4. PREDNISONE [Concomitant]
  5. THYROID TAB [Concomitant]
  6. POTASSIUM [Concomitant]
  7. METHOTREXATE [Concomitant]
  8. ROBOXIN [Concomitant]

REACTIONS (2)
  - DRUG EFFECT DECREASED [None]
  - LOSS OF CONSCIOUSNESS [None]
